FAERS Safety Report 5668982-8 (Version None)
Quarter: 2008Q2

REPORT INFORMATION
  Report Type: 
  Country: None (occurrence: None)
  Receive Date: 20080226
  Receipt Date: 20070327
  Transmission Date: 20081010
  Serious: Yes (Hospitalization)
  Sender: FDA-Public Use
  Company Number: 489601

PATIENT
  Age: 41 Year
  Sex: Female
  Weight: 57.6 kg

DRUGS (2)
  1. ACCUTANE [Suspect]
     Indication: ACNE CYSTIC
     Dosage: 60 MG DAILY
     Dates: start: 20070105, end: 20070323
  2. CALCIUM SUPPLEMENT (CALCIUM) [Concomitant]

REACTIONS (4)
  - DIPLOPIA [None]
  - HEAD DISCOMFORT [None]
  - VISUAL DISTURBANCE [None]
  - WHITE BLOOD CELL COUNT INCREASED [None]
